FAERS Safety Report 8514275-0 (Version None)
Quarter: 2012Q3

REPORT INFORMATION
  Report Type: 
  Country: None (occurrence: None)
  Receive Date: 20120717
  Receipt Date: 20120712
  Transmission Date: 20120928
  Serious: Yes (Other)
  Sender: FDA-Public Use
  Company Number: CO-PFIZER INC-2012169365

PATIENT
  Age: 57 Year
  Sex: Male

DRUGS (1)
  1. CARDURA [Suspect]
     Indication: PROSTATIC DISORDER
     Dosage: 4 MG, 1X/DAY
     Route: 048
     Dates: start: 20090101, end: 20120705

REACTIONS (1)
  - PROSTATIC DISORDER [None]
